FAERS Safety Report 4941874-5 (Version None)
Quarter: 2006Q1

REPORT INFORMATION
  Report Type: 
  Country: None (occurrence: None)
  Receive Date: 20060308
  Receipt Date: 20060222
  Transmission Date: 20060701
  Serious: Yes (Disabling, Other)
  Sender: FDA-Public Use
  Company Number: 2005169358

PATIENT
  Age: 61 Year
  Sex: Female
  Weight: 72 kg

DRUGS (2)
  1. NICOTINE [Suspect]
     Dosage: TRANSDERMAL
     Route: 062
     Dates: start: 20040401, end: 20040701
  2. NICORETTE [Suspect]
     Dosage: 4-5 (2 MG) PIECES DAILY, ORAL
     Route: 048
     Dates: start: 20040701

REACTIONS (5)
  - DRUG DEPENDENCE [None]
  - DRUG INEFFECTIVE [None]
  - GINGIVAL DISORDER [None]
  - HORMONE LEVEL ABNORMAL [None]
  - HYPERHIDROSIS [None]
